FAERS Safety Report 16711750 (Version 2)
Quarter: 2019Q3

REPORT INFORMATION
  Report Type: Report from Study
  Country: US (occurrence: US)
  Receive Date: 20190816
  Receipt Date: 20190822
  Transmission Date: 20191004
  Serious: No
  Sender: FDA-Public Use
  Company Number: US-SA-2019SA224177

PATIENT
  Age: 72 Year
  Sex: Female

DRUGS (1)
  1. ALIROCUMAB [Suspect]
     Active Substance: ALIROCUMAB
     Indication: LOW DENSITY LIPOPROTEIN INCREASED
     Dosage: 150 MG, QOW
     Dates: start: 20190809

REACTIONS (7)
  - Pruritus [Unknown]
  - Palatal swelling [Unknown]
  - Sinusitis [Unknown]
  - Herpes zoster [Unknown]
  - Eye infection [Unknown]
  - Urticaria [Unknown]
  - Immune system disorder [Unknown]

NARRATIVE: CASE EVENT DATE: 20190810
